FAERS Safety Report 11457346 (Version 1)
Quarter: 2015Q3

REPORT INFORMATION
  Report Type: Spontaneous
  Country: NZ (occurrence: NZ)
  Receive Date: 20150904
  Receipt Date: 20150904
  Transmission Date: 20151125
  Serious: Yes (Death, Other)
  Sender: FDA-Public Use
  Company Number: PHHY2015NZ105911

PATIENT
  Age: 56 Year
  Sex: Male

DRUGS (11)
  1. EVEROLIMUS [Suspect]
     Active Substance: EVEROLIMUS
     Indication: METASTATIC RENAL CELL CARCINOMA
     Dosage: UNK
     Route: 065
     Dates: start: 201102, end: 201105
  2. SUNITINIB [Suspect]
     Active Substance: SUNITINIB
     Dosage: 50 MG CONTINUOUS DAILY DOSING
     Route: 065
     Dates: start: 201202
  3. SUNITINIB [Suspect]
     Active Substance: SUNITINIB
     Dosage: 3 WEEK CYCLES
     Route: 065
     Dates: start: 20111223
  4. ENOXAPARIN [Concomitant]
     Active Substance: ENOXAPARIN
     Indication: VENA CAVA EMBOLISM
     Route: 065
  5. ZOLEDRONATE [Suspect]
     Active Substance: ZOLEDRONIC ACID
     Indication: HYPERCALCAEMIA OF MALIGNANCY
     Dosage: 4 MG, FOUR WEEKLY
     Route: 065
  6. SUNITINIB [Suspect]
     Active Substance: SUNITINIB
     Indication: METASTATIC RENAL CELL CARCINOMA
     Dosage: 50 MG, QD IN 6 WEEK CYCLES
     Route: 065
     Dates: start: 20110708
  7. SUNITINIB [Suspect]
     Active Substance: SUNITINIB
     Dosage: 62.5 MG CONTINUOUS DAILY DOSING
     Route: 065
     Dates: start: 201206
  8. ENOXAPARIN [Concomitant]
     Active Substance: ENOXAPARIN
     Indication: PELVIC VENOUS THROMBOSIS
  9. PAMIDRONATE [Suspect]
     Active Substance: PAMIDRONATE DISODIUM
     Indication: HYPERCALCAEMIA OF MALIGNANCY
     Dosage: 90 MG, UNK
     Route: 042
  10. ZOLEDRONATE [Suspect]
     Active Substance: ZOLEDRONIC ACID
     Dosage: 4 MG, THREE WEEKLY
     Route: 065
  11. SUNITINIB [Suspect]
     Active Substance: SUNITINIB
     Dosage: 75 MG, QD
     Route: 065
     Dates: start: 201209

REACTIONS (5)
  - General physical health deterioration [Fatal]
  - Metastases to pelvis [Unknown]
  - Pain in extremity [Unknown]
  - Hypercalcaemia [Recovering/Resolving]
  - Malignant neoplasm progression [Unknown]
